FAERS Safety Report 10091454 (Version 3)
Quarter: 2015Q3

REPORT INFORMATION
  Report Type: Spontaneous
  Country: US (occurrence: US)
  Receive Date: 20140421
  Receipt Date: 20150813
  Transmission Date: 20151125
  Serious: No
  Sender: FDA-Public Use
  Company Number: US-GILEAD-2012-0064791

PATIENT
  Age: 47 Year
  Sex: Female

DRUGS (2)
  1. LETAIRIS [Suspect]
     Active Substance: AMBRISENTAN
     Indication: PULMONARY ARTERIAL HYPERTENSION
     Dosage: 10 MG, QD
     Route: 048
     Dates: start: 20071204
  2. LETAIRIS [Suspect]
     Active Substance: AMBRISENTAN
     Dates: start: 20071204

REACTIONS (2)
  - Influenza [Unknown]
  - Nasal congestion [Unknown]

NARRATIVE: CASE EVENT DATE: 201211
